FAERS Safety Report 25907773 (Version 1)
Quarter: 2025Q4

REPORT INFORMATION
  Report Type: Spontaneous
  Country: US (occurrence: US)
  Receive Date: 20251010
  Receipt Date: 20251010
  Transmission Date: 20260117
  Serious: Yes (Other)
  Sender: DR REDDYS
  Company Number: None

PATIENT
  Age: 54 Year
  Sex: Female

DRUGS (9)
  1. TACROLIMUS [Suspect]
     Active Substance: TACROLIMUS
     Indication: Immunosuppression
     Route: 065
     Dates: start: 201409
  2. TACROLIMUS [Suspect]
     Active Substance: TACROLIMUS
     Indication: Immunosuppressant drug therapy
  3. SIROLIMUS [Suspect]
     Active Substance: SIROLIMUS
     Indication: Immunosuppression
     Dosage: THERAPY START DATE: OCT-2015
     Route: 065
     Dates: end: 2015
  4. SIROLIMUS [Suspect]
     Active Substance: SIROLIMUS
     Indication: Immunosuppressant drug therapy
  5. MYCOPHENOLATE MOFETIL [Suspect]
     Active Substance: MYCOPHENOLATE MOFETIL
     Indication: Immunosuppression
     Dosage: MYCOPHENOLATE MOFETIL WAS SWITCHED TO SIROLIMUS DUE TO LEUKOPENIA AND NAUSEA
     Route: 065
     Dates: start: 201409, end: 201510
  6. MYCOPHENOLATE MOFETIL [Suspect]
     Active Substance: MYCOPHENOLATE MOFETIL
     Indication: Immunosuppressant drug therapy
  7. PREDNISONE [Suspect]
     Active Substance: PREDNISONE
     Indication: Immunosuppression
     Route: 065
     Dates: start: 201409
  8. PREDNISONE [Suspect]
     Active Substance: PREDNISONE
     Indication: Immunosuppressant drug therapy
  9. THYMOGLOBULIN [Suspect]
     Active Substance: LAPINE T-LYMPHOCYTE IMMUNE GLOBULIN
     Indication: Immunosuppressant drug therapy
     Route: 065
     Dates: start: 201409, end: 2014

REACTIONS (2)
  - Infection reactivation [Recovered/Resolved]
  - American trypanosomiasis [Recovered/Resolved]

NARRATIVE: CASE EVENT DATE: 20150501
